FAERS Safety Report 20941372 (Version 1)
Quarter: 2022Q2

REPORT INFORMATION
  Report Type: Spontaneous
  Country: US (occurrence: US)
  Receive Date: 20220610
  Receipt Date: 20220610
  Transmission Date: 20220721
  Serious: Yes (Hospitalization, Other)
  Sender: FDA-Public Use
  Company Number: US-009507513-2108USA001396

PATIENT
  Sex: Male

DRUGS (9)
  1. ZOSTAVAX [Suspect]
     Active Substance: VARICELLA-ZOSTER VIRUS STRAIN OKA/MERCK LIVE ANTIGEN
     Indication: Routine health maintenance
     Dosage: .65 MILLILITER
     Route: 058
     Dates: start: 20170929
  2. ZOSTAVAX [Suspect]
     Active Substance: VARICELLA-ZOSTER VIRUS STRAIN OKA/MERCK LIVE ANTIGEN
     Indication: Prophylaxis
  3. STERILE DILUENT (WATER) [Suspect]
     Active Substance: WATER
     Dosage: UNK
     Route: 058
     Dates: start: 20170929
  4. ALFUZOSIN [Concomitant]
     Active Substance: ALFUZOSIN
     Indication: Benign prostatic hyperplasia
     Dosage: 10 MILLIGRAM (1 TABLET), QD
     Dates: start: 2016
  5. ATORVASTATIN [Concomitant]
     Active Substance: ATORVASTATIN
     Indication: Blood cholesterol increased
     Dosage: 80 MILLIGRAM (1 TABLET), QD
     Dates: start: 2016
  6. GABAPENTIN [Concomitant]
     Active Substance: GABAPENTIN
     Indication: Diabetic neuropathy
     Dosage: 300 MILLIGRAM (1 TABLET), BID
     Dates: start: 1998
  7. NOVOLOG [Concomitant]
     Active Substance: INSULIN ASPART
     Indication: Type 2 diabetes mellitus
     Dosage: 100 UNITS AT BREAKFAST AND LUNCH, 80 UNITS AT DINNER
     Dates: start: 1998
  8. OMEPRAZOLE [Concomitant]
     Active Substance: OMEPRAZOLE
     Indication: Gastrooesophageal reflux disease
     Dosage: 40 MILLIGRAM (2 TABLETS), QD
     Dates: start: 2008
  9. OXYCODONE [Concomitant]
     Active Substance: OXYCODONE
     Indication: Back pain
     Dosage: 5-325 MG TABLET, 1 TABLET DAILY
     Dates: start: 2009

REACTIONS (17)
  - VIth nerve paralysis [Recovering/Resolving]
  - Spinal operation [Unknown]
  - Spinal operation [Unknown]
  - Spinal fusion surgery [Unknown]
  - Cataract nuclear [Unknown]
  - Diabetes mellitus inadequate control [Unknown]
  - Vitreous detachment [Unknown]
  - Cerebral ischaemia [Unknown]
  - Palpitations [Unknown]
  - Arthritis [Unknown]
  - Gout [Unknown]
  - Ocular hyperaemia [Unknown]
  - Thyroid disorder [Unknown]
  - Macular pigmentation [Unknown]
  - Blepharitis [Unknown]
  - Diuretic therapy [Unknown]
  - Diabetic retinopathy [Unknown]

NARRATIVE: CASE EVENT DATE: 20180101
